FAERS Safety Report 6112354-9 (Version None)
Quarter: 2009Q1

REPORT INFORMATION
  Report Type: 
  Country: None (occurrence: None)
  Receive Date: 20090311
  Receipt Date: 20090311
  Transmission Date: 20090719
  Serious: Yes (Other)
  Sender: FDA-Public Use
  Company Number: None

PATIENT
  Age: 33 Year
  Sex: Female
  Weight: 72.5755 kg

DRUGS (2)
  1. FLUOXETINE [Suspect]
     Indication: MAJOR DEPRESSION
     Dosage: 20MG 2 PO QD ORAL
     Route: 048
     Dates: start: 20031105, end: 20040105
  2. FLUOXETINE [Suspect]
     Indication: SEASONAL AFFECTIVE DISORDER
     Dosage: 20MG 2 PO QD ORAL
     Route: 048
     Dates: start: 20031105, end: 20040105

REACTIONS (3)
  - DEPRESSION [None]
  - FATIGUE [None]
  - PRODUCT QUALITY ISSUE [None]
